FAERS Safety Report 23701451 (Version 2)
Quarter: 2024Q3

REPORT INFORMATION
  Report Type: Report from Study
  Country: JP (occurrence: JP)
  Receive Date: 20240403
  Receipt Date: 20240816
  Transmission Date: 20241017
  Serious: Yes (Other)
  Sender: NOVARTIS
  Company Number: JP-002147023-NVSJ2022JP098550

PATIENT
  Age: 22 Year
  Sex: Male
  Weight: 53 kg

DRUGS (3)
  1. KYMRIAH [Suspect]
     Active Substance: TISAGENLECLEUCEL
     Indication: Acute lymphocytic leukaemia recurrent
     Dosage: TOTAL NUMBER OF LYMPHOCYTES:2.5 X10^8 (WHOLE DOSE)
     Route: 041
     Dates: start: 20220225, end: 20220225
  2. FLUDARABINE [Concomitant]
     Active Substance: FLUDARABINE PHOSPHATE
     Indication: Lymphodepletion
     Dosage: 30 MG/M2
     Route: 065
     Dates: start: 20220220
  3. BLINATUMOMAB [Concomitant]
     Active Substance: BLINATUMOMAB
     Indication: Acute lymphocytic leukaemia recurrent
     Dosage: UNK
     Route: 065
     Dates: start: 20220525

REACTIONS (13)
  - Cytokine release syndrome [Recovered/Resolved]
  - Pyrexia [Unknown]
  - Hypogammaglobulinaemia [Recovered/Resolved]
  - Candida pneumonia [Unknown]
  - Platelet count decreased [Unknown]
  - Candida endophthalmitis [Unknown]
  - Acute lymphocytic leukaemia recurrent [Unknown]
  - Hypogammaglobulinaemia [Not Recovered/Not Resolved]
  - Acute graft versus host disease [Recovered/Resolved]
  - Non-Hodgkin^s lymphoma [Unknown]
  - Second primary malignancy [Unknown]
  - Epstein-Barr virus infection [Unknown]
  - Candida infection [Unknown]

NARRATIVE: CASE EVENT DATE: 20220226
